FAERS Safety Report 13908225 (Version 1)
Quarter: 2017Q3

REPORT INFORMATION
  Report Type: Spontaneous
  Country: US (occurrence: US)
  Receive Date: 20170825
  Receipt Date: 20170825
  Transmission Date: 20171127
  Serious: No
  Sender: FDA-Public Use
  Company Number: US-TEIKOKU PHARMA USA-TPU2017-00472

PATIENT
  Age: 78 Year
  Sex: Female
  Weight: 53.57 kg

DRUGS (3)
  1. LIDOCAINE PATCH [Suspect]
     Active Substance: LIDOCAINE
     Indication: MYALGIA
     Dosage: 1 PATCH TO THE BACK 12 HOURS AT NIGHT REMOVE 12 HOURS LATER
     Dates: start: 20170801
  2. LIDOCAINE PATCH [Suspect]
     Active Substance: LIDOCAINE
     Indication: MENISCUS INJURY
  3. BACLOFEN. [Concomitant]
     Active Substance: BACLOFEN
     Indication: BACK PAIN
     Dosage: 1 OR 2 TABLETS AT BEDTIME

REACTIONS (4)
  - Multiple use of single-use product [Unknown]
  - Application site pruritus [Not Recovered/Not Resolved]
  - Incorrect drug administration duration [Unknown]
  - Application site erythema [Not Recovered/Not Resolved]

NARRATIVE: CASE EVENT DATE: 201708
